FAERS Safety Report 11277845 (Version 3)
Quarter: 2016Q1

REPORT INFORMATION
  Report Type: Report from Study
  Country: KE (occurrence: KE)
  Receive Date: 20150716
  Receipt Date: 20160303
  Transmission Date: 20160525
  Serious: Yes (Death, Life-Threatening, Hospitalization, Other)
  Sender: FDA-Public Use
  Company Number: KE-GILEAD-2015-0163061

PATIENT
  Age: 42 Year
  Sex: Male

DRUGS (1)
  1. EMTRICITABINE/TENOFOVIR DISOPROXIL FUMARATE [Suspect]
     Active Substance: EMTRICITABINE\TENOFOVIR DISOPROXIL
     Indication: PROPHYLAXIS AGAINST HIV INFECTION
     Dosage: UNK
     Route: 065
     Dates: start: 20140627, end: 20150529

REACTIONS (3)
  - Gastrointestinal neoplasm [Not Recovered/Not Resolved]
  - Colon cancer [Fatal]
  - Lower gastrointestinal haemorrhage [Not Recovered/Not Resolved]

NARRATIVE: CASE EVENT DATE: 20150616
